FAERS Safety Report 9790792 (Version 2)
Quarter: 2014Q1

REPORT INFORMATION
  Report Type: Report from Study
  Country: NL (occurrence: NL)
  Receive Date: 20131231
  Receipt Date: 20140219
  Transmission Date: 20141002
  Serious: Yes (Death)
  Sender: FDA-Public Use
  Company Number: PHHY2013NL153477

PATIENT
  Age: 69 Year
  Sex: Male

DRUGS (9)
  1. ZOMETA [Suspect]
     Indication: PROSTATE CANCER METASTATIC
     Dosage: 4 MG, ONCE EVERY 8 WEEKS
     Route: 042
  2. ZOMETA [Suspect]
     Dosage: 4 MG, ONCE EVERY 8 WEEKS
     Dates: start: 20121107
  3. ZOMETA [Suspect]
     Dosage: 4 MG, ONCE EVERY 8 WEEKS
     Dates: start: 20131014
  4. PARACETAMOL [Concomitant]
     Dosage: UNK UKN, UNK
  5. METOPROLOL [Concomitant]
     Dosage: UNK UKN, UNK
  6. PREDNISOLONE [Concomitant]
     Dosage: UNK UKN, UNK
  7. BISACODYL [Concomitant]
     Dosage: UNK UKN, UNK
  8. FENTANYL [Concomitant]
     Dosage: UNK UKN, UNK
  9. LACTULOSE [Concomitant]
     Dosage: UNK UKN, UNK

REACTIONS (1)
  - Prostate cancer metastatic [Fatal]
